FAERS Safety Report 16668795 (Version 1)
Quarter: 2019Q3

REPORT INFORMATION
  Report Type: Spontaneous
  Country: US (occurrence: US)
  Receive Date: 20190805
  Receipt Date: 20190805
  Transmission Date: 20191004
  Serious: No
  Sender: FDA-Public Use
  Company Number: US-ASTRAZENECA-2019SF09312

PATIENT
  Age: 938 Month
  Sex: Female

DRUGS (2)
  1. VENTOLIN HFA ALBUTEROL SULFATE [Concomitant]
     Indication: ASTHMA
     Dosage: AS REQUIRED
     Route: 055
  2. FASENRA [Suspect]
     Active Substance: BENRALIZUMAB
     Indication: ASTHMA
     Route: 058
     Dates: start: 201905

REACTIONS (2)
  - Heart rate irregular [Unknown]
  - Dizziness [Recovered/Resolved]

NARRATIVE: CASE EVENT DATE: 201906
